FAERS Safety Report 22109490 (Version 1)
Quarter: 2023Q1

REPORT INFORMATION
  Report Type: Spontaneous
  Country: US (occurrence: None)
  Receive Date: 20230316
  Receipt Date: 20230316
  Transmission Date: 20230418
  Serious: Yes (Hospitalization)
  Sender: FDA-Public Use
  Company Number: None

PATIENT
  Age: 80 Year
  Sex: Female

DRUGS (1)
  1. ORENCIA [Suspect]
     Active Substance: ABATACEPT
     Dosage: OTHER FREQUENCY : OTHER;?
     Route: 058
     Dates: start: 202206

REACTIONS (3)
  - Nephrolithiasis [None]
  - Kidney infection [None]
  - Sepsis [None]

NARRATIVE: CASE EVENT DATE: 20230316
